FAERS Safety Report 9294679 (Version 1)
Quarter: 2013Q1

REPORT INFORMATION
  Report Type: Spontaneous
  Country: US (occurrence: None)
  Receive Date: 20121227
  Receipt Date: 20121227
  Transmission Date: 20140127
  Serious: Yes (Other)
  Sender: FDA-Public Use
  Company Number: PHEH2011US009513

PATIENT
  Age: 44 Year
  Sex: Female
  Weight: 105 kg

DRUGS (15)
  1. MYFORTIC (MYCOPHENOLIC ACID) TABLET [Suspect]
     Indication: RENAL TRANSPLANT
     Route: 048
     Dates: start: 20110603
  2. PROGRAF (TACROLIMUS) [Concomitant]
  3. AMLODIPINE (AMLODIPINE) [Concomitant]
  4. PANTOPRAZOLE (PANTOPRAZOLE) [Concomitant]
  5. COREG (CARVEDILOL) [Concomitant]
  6. DOXAZOSIN [Concomitant]
  7. PREDNISONE (PREDNISONE) [Concomitant]
  8. BACTRIM [Concomitant]
  9. MAGNESIUM (MAGNESIUM) [Concomitant]
  10. CARVEDILOL (CARVEDILOL) [Concomitant]
  11. SODIUM BICARBONATE (SODIUM BICARBONATE) [Concomitant]
  12. FISH OIL (FISH OIL) [Concomitant]
  13. TEMAZEPAM (TEMAZEPAM) [Concomitant]
  14. CALCIUM (CALCIUM) [Concomitant]
  15. VITAMIN D3 (COLECALCIFEROL) [Concomitant]

REACTIONS (2)
  - Polyomavirus-associated nephropathy [None]
  - Kidney transplant rejection [None]
